FAERS Safety Report 12865580 (Version 1)
Quarter: 2016Q4

REPORT INFORMATION
  Report Type: Spontaneous
  Country: US (occurrence: US)
  Receive Date: 20161019
  Receipt Date: 20161019
  Transmission Date: 20170207
  Serious: Yes (Life-Threatening, Hospitalization)
  Sender: FDA-Public Use
  Company Number: None

PATIENT
  Age: 29 Year
  Sex: Male
  Weight: 102.5 kg

DRUGS (1)
  1. AMOXICILLIN. [Suspect]
     Active Substance: AMOXICILLIN
     Indication: BRONCHITIS
     Route: 048
     Dates: start: 20161005, end: 20161007

REACTIONS (7)
  - Anaphylactic reaction [None]
  - Anxiety [None]
  - Dyspnoea [None]
  - Panic attack [None]
  - Swollen tongue [None]
  - Salivary hypersecretion [None]
  - Hypertension [None]

NARRATIVE: CASE EVENT DATE: 20161007
